FAERS Safety Report 23478253 (Version 1)
Quarter: 2024Q1

REPORT INFORMATION
  Report Type: Report from Study
  Country: US (occurrence: US)
  Receive Date: 20240204
  Receipt Date: 20240204
  Transmission Date: 20240410
  Serious: No
  Sender: FDA-Public Use
  Company Number: US-EXELIXIS-CABO-23069232

PATIENT
  Sex: Male
  Weight: 126.98 kg

DRUGS (3)
  1. CABOMETYX [Suspect]
     Active Substance: CABOZANTINIB S-MALATE
     Indication: Product used for unknown indication
     Dosage: UNK
  2. WELIREG [Suspect]
     Active Substance: BELZUTIFAN
     Indication: Product used for unknown indication
     Dosage: UNK
  3. WELIREG [Suspect]
     Active Substance: BELZUTIFAN
     Dosage: UNK

REACTIONS (4)
  - Hypoaesthesia [Unknown]
  - Ageusia [Unknown]
  - Laboratory test abnormal [Unknown]
  - Genital rash [Unknown]
